FAERS Safety Report 8127307-9 (Version None)
Quarter: 2012Q1

REPORT INFORMATION
  Report Type: 
  Country: None (occurrence: None)
  Receive Date: 20120210
  Receipt Date: 20120131
  Transmission Date: 20120608
  Serious: Yes (Death, Other)
  Sender: FDA-Public Use
  Company Number: US-JNJFOC-20120204387

PATIENT
  Age: 70 Year
  Sex: Female

DRUGS (17)
  1. TRASTUZUMAB [Suspect]
     Route: 065
  2. PACLITAXEL [Suspect]
     Route: 065
  3. TRASTUZUMAB [Suspect]
     Route: 065
  4. CYCLOPHOSPHAMIDE [Suspect]
     Route: 065
  5. TRASTUZUMAB [Suspect]
     Indication: BREAST CANCER
     Route: 065
  6. CYCLOPHOSPHAMIDE [Suspect]
     Route: 065
  7. DOXORUBICIN HCL [Suspect]
     Indication: BREAST CANCER
     Route: 042
  8. TRASTUZUMAB [Suspect]
     Route: 065
  9. PACLITAXEL [Suspect]
     Indication: BREAST CANCER
     Route: 065
  10. PACLITAXEL [Suspect]
     Route: 065
  11. PACLITAXEL [Suspect]
     Route: 065
  12. CYCLOPHOSPHAMIDE [Suspect]
     Indication: BREAST CANCER
     Route: 065
  13. DOXORUBICIN HCL [Suspect]
     Route: 042
  14. CYCLOPHOSPHAMIDE [Suspect]
     Route: 065
  15. DOXORUBICIN HCL [Suspect]
     Route: 042
  16. DOXORUBICIN HCL [Suspect]
     Route: 042
  17. PREMEDICATION [Concomitant]
     Route: 065

REACTIONS (3)
  - CARDIOGENIC SHOCK [None]
  - CARDIAC FAILURE CONGESTIVE [None]
  - LACTIC ACIDOSIS [None]
